FAERS Safety Report 5253940-8 (Version None)
Quarter: 2007Q1

REPORT INFORMATION
  Report Type: 
  Country: None (occurrence: None)
  Receive Date: 20070228
  Receipt Date: 20070228
  Transmission Date: 20070707
  Serious: Yes (Other)
  Sender: FDA-Public Use
  Company Number: None

PATIENT
  Age: 43 Year
  Sex: Female
  Weight: 74.8435 kg

DRUGS (2)
  1. OXYCODONE XR  (ENDO) [Suspect]
     Indication: FIBROMYALGIA
     Dosage: 40 MG  THREE BID  PO
     Route: 048
     Dates: start: 20050701, end: 20050801
  2. OXYCODONE XR  (ENDO) [Suspect]
     Indication: SYSTEMIC LUPUS ERYTHEMATOSUS
     Dosage: 40 MG  THREE BID  PO
     Route: 048
     Dates: start: 20050701, end: 20050801

REACTIONS (5)
  - ABDOMINAL PAIN [None]
  - DYSPHAGIA [None]
  - NAUSEA [None]
  - PHARMACEUTICAL PRODUCT COMPLAINT [None]
  - PHARYNGEAL OEDEMA [None]
